FAERS Safety Report 8421126-1 (Version None)
Quarter: 2012Q2

REPORT INFORMATION
  Report Type: 
  Country: None (occurrence: None)
  Receive Date: 20120604
  Receipt Date: 20120604
  Transmission Date: 20120825
  Serious: No
  Sender: FDA-Public Use
  Company Number: None

PATIENT
  Age: 68 Year
  Sex: Male
  Weight: 72.4 kg

DRUGS (1)
  1. ZILEUTON [Suspect]
     Indication: ASTHMA
     Dosage: MG BID PO
     Route: 048
     Dates: start: 20110624, end: 20120215

REACTIONS (6)
  - DECREASED APPETITE [None]
  - FLATULENCE [None]
  - DIARRHOEA [None]
  - NAUSEA [None]
  - DEPRESSION [None]
  - VOMITING [None]
